FAERS Safety Report 4353160-5 (Version None)
Quarter: 2004Q2

REPORT INFORMATION
  Report Type: 
  Country: None (occurrence: None)
  Receive Date: 20040503
  Receipt Date: 20040503
  Transmission Date: 20050107
  Serious: Yes (Other)
  Sender: FDA-Public Use
  Company Number: None

PATIENT
  Age: 51 Year
  Sex: Male

DRUGS (8)
  1. HUMIRA [Suspect]
     Indication: RHEUMATOID ARTHRITIS
  2. CARDURA [Concomitant]
  3. PREDNISONE [Concomitant]
  4. VICODIN [Concomitant]
  5. PREVACID [Concomitant]
  6. LASIX [Concomitant]
  7. METOCLOPRAMIDE [Concomitant]
  8. ATIVAN [Concomitant]

REACTIONS (1)
  - VISION BLURRED [None]
